FAERS Safety Report 8443964-1 (Version None)
Quarter: 2012Q2

REPORT INFORMATION
  Report Type: 
  Country: None (occurrence: None)
  Receive Date: 20120618
  Receipt Date: 20120609
  Transmission Date: 20120825
  Serious: Yes (Hospitalization)
  Sender: FDA-Public Use
  Company Number: PHHY2012CH049996

PATIENT
  Age: 8 Year
  Sex: Female

DRUGS (7)
  1. CORTICOSTEROIDS [Concomitant]
     Indication: RENAL TRANSPLANT
  2. PREDNISONE [Concomitant]
     Dosage: 1 MG/KG, BID
  3. MYCOPHENOLATE MOFETIL [Concomitant]
     Indication: RENAL TRANSPLANT
     Dosage: 350 MG/M2, UNK
  4. VALGANCICLOVIR [Concomitant]
     Indication: ANTIVIRAL PROPHYLAXIS
  5. BASILIXIMAB [Suspect]
     Indication: RENAL TRANSPLANT
  6. COTRIM [Concomitant]
     Indication: ANTIFUNGAL PROPHYLAXIS
  7. TACROLIMUS [Concomitant]
     Indication: RENAL TRANSPLANT

REACTIONS (9)
  - BLOOD PRESSURE DECREASED [None]
  - AGRANULOCYTOSIS [None]
  - ABDOMINAL PAIN [None]
  - VOMITING [None]
  - DEHYDRATION [None]
  - PYREXIA [None]
  - DIARRHOEA [None]
  - RENAL FAILURE ACUTE [None]
  - GASTROENTERITIS NOROVIRUS [None]
